FAERS Safety Report 10745134 (Version 1)
Quarter: 2015Q1

REPORT INFORMATION
  Report Type: Spontaneous
  Country: US (occurrence: None)
  Receive Date: 20150126
  Receipt Date: 20150126
  Transmission Date: 20150721
  Serious: Yes (Other)
  Sender: FDA-Public Use
  Company Number: None

PATIENT
  Age: 86 Year
  Sex: Male
  Weight: 83.92 kg

DRUGS (2)
  1. KETOCONAZOLE. [Concomitant]
     Active Substance: KETOCONAZOLE
  2. CEFDINIR. [Suspect]
     Active Substance: CEFDINIR
     Indication: LOCALISED INFECTION
     Route: 048
     Dates: start: 20141109, end: 20141118

REACTIONS (8)
  - Swelling face [None]
  - Psychomotor hyperactivity [None]
  - Peripheral swelling [None]
  - Fluid retention [None]
  - Dizziness [None]
  - Mood altered [None]
  - Rhinorrhoea [None]
  - Secretion discharge [None]

NARRATIVE: CASE EVENT DATE: 20141109
